FAERS Safety Report 7293371-2 (Version None)
Quarter: 2011Q1

REPORT INFORMATION
  Report Type: 
  Country: None (occurrence: None)
  Receive Date: 20110215
  Receipt Date: 20110211
  Transmission Date: 20110831
  Serious: Yes (Other)
  Sender: FDA-Public Use
  Company Number: GXKR2011DE00906

PATIENT
  Age: 60 Year
  Sex: Female

DRUGS (1)
  1. LEVOPAR [Suspect]
     Dosage: 62.5 MG, UNK
     Route: 048

REACTIONS (1)
  - BREAST DISCHARGE [None]
